FAERS Safety Report 25061248 (Version 2)
Quarter: 2025Q2

REPORT INFORMATION
  Report Type: Spontaneous
  Country: JP (occurrence: JP)
  Receive Date: 20250310
  Receipt Date: 20250401
  Transmission Date: 20250716
  Serious: No
  Sender: AMGEN
  Company Number: JP-KYOWAKIRIN-2025KK001732

PATIENT
  Age: 6 Year
  Sex: Male

DRUGS (1)
  1. ROMIPLOSTIM [Suspect]
     Active Substance: ROMIPLOSTIM
     Indication: Immune thrombocytopenia
     Dosage: UNK, 1X/WEEK
     Route: 058
     Dates: start: 20250124

REACTIONS (1)
  - Off label use [Unknown]

NARRATIVE: CASE EVENT DATE: 20250124
